FAERS Safety Report 7488512-8 (Version None)
Quarter: 2011Q2

REPORT INFORMATION
  Report Type: 
  Country: None (occurrence: None)
  Receive Date: 20110518
  Receipt Date: 20110506
  Transmission Date: 20111010
  Serious: Yes (Other)
  Sender: FDA-Public Use
  Company Number: US-JNJFOC-20110308694

PATIENT
  Sex: Female

DRUGS (2)
  1. EFFEXOR [Concomitant]
     Indication: SCHIZOAFFECTIVE DISORDER
     Route: 065
  2. INVEGA [Suspect]
     Indication: SCHIZOAFFECTIVE DISORDER
     Route: 048
     Dates: start: 20100923, end: 20110301

REACTIONS (1)
  - VISUAL IMPAIRMENT [None]
